FAERS Safety Report 11090175 (Version 2)
Quarter: 2015Q2

REPORT INFORMATION
  Report Type: Spontaneous
  Country: JP (occurrence: JP)
  Receive Date: 20150501
  Receipt Date: 20150527
  Transmission Date: 20150821
  Serious: Yes (Other)
  Sender: FDA-Public Use
  Company Number: 2840944

PATIENT
  Age: 79 Year
  Sex: Male
  Weight: 71.3 kg

DRUGS (7)
  1. PRECEDEX [Suspect]
     Active Substance: DEXMEDETOMIDINE HYDROCHLORIDE
     Indication: SEDATIVE THERAPY
     Dosage: MAINTENANCE DOSE: 0.6 MCG/KG/HR
     Route: 042
     Dates: start: 20141028, end: 20141028
  2. N-BUTYLSCOPOLAMMONIUM BROMIDE [Concomitant]
     Indication: MUSCLE SPASMS
     Route: 042
     Dates: start: 20141028, end: 20141028
  3. MIDAZOLAM [Suspect]
     Active Substance: MIDAZOLAM\MIDAZOLAM HYDROCHLORIDE
     Indication: SEDATIVE THERAPY
     Route: 042
     Dates: start: 20141028, end: 20141028
  4. PRECEDEX [Suspect]
     Active Substance: DEXMEDETOMIDINE HYDROCHLORIDE
     Indication: SEDATIVE THERAPY
     Dosage: INITIAL LOADING DOSE: 6 MCG/KG/HR
     Route: 042
     Dates: start: 20141028, end: 20141028
  5. PENTAZOCINE [Suspect]
     Active Substance: PENTAZOCINE
     Indication: ANALGESIC THERAPY
     Route: 042
     Dates: start: 20141028, end: 20141028
  6. ATROPINE SULFATE HYDRATE [Concomitant]
     Active Substance: ATROPINE SULFATE
     Indication: PREOPERATIVE CARE
     Route: 042
     Dates: start: 20141028, end: 20141028
  7. MIDAZOLAM [Suspect]
     Active Substance: MIDAZOLAM\MIDAZOLAM HYDROCHLORIDE
     Indication: SEDATIVE THERAPY
     Route: 042
     Dates: start: 20141028, end: 20141028

REACTIONS (1)
  - Respiratory arrest [Recovered/Resolved]

NARRATIVE: CASE EVENT DATE: 20141028
